FAERS Safety Report 6665279-4 (Version None)
Quarter: 2010Q1

REPORT INFORMATION
  Report Type: 
  Country: None (occurrence: None)
  Receive Date: 20100331
  Receipt Date: 20100326
  Transmission Date: 20100710
  Serious: Yes (Other)
  Sender: FDA-Public Use
  Company Number: RB-05702-2010

PATIENT
  Age: 47 Year
  Sex: Female

DRUGS (1)
  1. MUCINEX [Suspect]
     Dosage: TOOK ONE TABLET AND 12 HOURS LATER, TOOK THE OTHER. ORAL
     Route: 048
     Dates: start: 20100301

REACTIONS (8)
  - GASTROINTESTINAL TRACT MUCOSAL DISCOLOURATION [None]
  - GLOSSITIS [None]
  - MOUTH HAEMORRHAGE [None]
  - OROPHARYNGEAL BLISTERING [None]
  - PHARYNGEAL HAEMORRHAGE [None]
  - PHARYNGEAL OEDEMA [None]
  - RASH [None]
  - TONGUE DISORDER [None]
